FAERS Safety Report 8572440-0 (Version None)
Quarter: 2012Q3

REPORT INFORMATION
  Report Type: 
  Country: None (occurrence: None)
  Receive Date: 20120806
  Receipt Date: 20120725
  Transmission Date: 20120928
  Serious: Yes (Life-Threatening)
  Sender: FDA-Public Use
  Company Number: GB-ROCHE-1092772

PATIENT
  Age: 18 Year
  Sex: Female
  Weight: 64.2 kg

DRUGS (1)
  1. ISOTRETINOIN [Suspect]
     Indication: ACNE
     Route: 048
     Dates: start: 20120405, end: 20120505

REACTIONS (5)
  - DEPRESSION [None]
  - SELF-INJURIOUS IDEATION [None]
  - TEARFULNESS [None]
  - SUICIDAL IDEATION [None]
  - DISTURBANCE IN ATTENTION [None]
